FAERS Safety Report 12990778 (Version 2)
Quarter: 2016Q4

REPORT INFORMATION
  Report Type: Report from Study
  Country: US (occurrence: US)
  Receive Date: 20161201
  Receipt Date: 20161216
  Transmission Date: 20170207
  Serious: Yes (Other)
  Sender: FDA-Public Use
  Company Number: US-JNJFOC-20161123207

PATIENT
  Sex: Male
  Weight: 77.11 kg

DRUGS (2)
  1. STELARA [Suspect]
     Active Substance: USTEKINUMAB
     Indication: PSORIASIS
     Route: 058
  2. ENBREL [Concomitant]
     Active Substance: ETANERCEPT
     Indication: PSORIASIS
     Route: 065

REACTIONS (7)
  - Seizure [Not Recovered/Not Resolved]
  - Inadequate diet [Unknown]
  - Subcutaneous abscess [Unknown]
  - Psoriasis [Unknown]
  - Ischaemic stroke [Not Recovered/Not Resolved]
  - Skin abrasion [Unknown]
  - Laceration [Unknown]

NARRATIVE: CASE EVENT DATE: 2010
